FAERS Safety Report 22784991 (Version 4)
Quarter: 2023Q4

REPORT INFORMATION
  Report Type: Report from Study
  Country: US (occurrence: US)
  Receive Date: 20230804
  Receipt Date: 20231017
  Transmission Date: 20240109
  Serious: Yes (Hospitalization, Other)
  Sender: FDA-Public Use
  Company Number: US-MALLINCKRODT-MNK202302768

PATIENT
  Sex: Male

DRUGS (4)
  1. CORTICOTROPIN [Suspect]
     Active Substance: CORTICOTROPIN
     Indication: Sarcoidosis of lymph node
     Dosage: UNKNOWN
  2. CORTICOTROPIN [Suspect]
     Active Substance: CORTICOTROPIN
     Indication: Sarcoidosis
     Dosage: UNKNOWN
  3. CORTICOTROPIN [Suspect]
     Active Substance: CORTICOTROPIN
     Dosage: 80 UNITS
     Dates: start: 20220830
  4. CORTICOTROPIN [Suspect]
     Active Substance: CORTICOTROPIN
     Dosage: UNKNOWN
     Dates: start: 20231002

REACTIONS (7)
  - Diabetes mellitus inadequate control [Not Recovered/Not Resolved]
  - Wound infection [Not Recovered/Not Resolved]
  - Somnolence [Not Recovered/Not Resolved]
  - Blood calcium abnormal [Not Recovered/Not Resolved]
  - Fatigue [Not Recovered/Not Resolved]
  - Malaise [Not Recovered/Not Resolved]
  - Product use issue [Unknown]
